FAERS Safety Report 4824480-2 (Version None)
Quarter: 2005Q4

REPORT INFORMATION
  Report Type: 
  Country: None (occurrence: None)
  Receive Date: 20051108
  Receipt Date: 20051021
  Transmission Date: 20060501
  Serious: Yes (Hospitalization)
  Sender: FDA-Public Use
  Company Number: EWC051046885

PATIENT
  Age: 58 Year
  Sex: Male

DRUGS (7)
  1. GEMCITABINE HYDROCHLORIDE-IV (GEMCITABINE) [Suspect]
     Indication: NON-SMALL CELL LUNG CANCER
     Dates: end: 20050909
  2. METFORMIN [Concomitant]
  3. ISOPHANE INSULIN [Concomitant]
  4. INSULIN LISPRO [Concomitant]
  5. LISINOPRIL [Concomitant]
  6. METAPROTERENOL SULFATE [Concomitant]
  7. CARBOPLATIN [Concomitant]

REACTIONS (8)
  - BLOOD CREATININE INCREASED [None]
  - BLOOD LACTATE DEHYDROGENASE DECREASED [None]
  - BLOOD LACTATE DEHYDROGENASE INCREASED [None]
  - DIFFICULTY IN WALKING [None]
  - DYSPNOEA [None]
  - MYOSITIS [None]
  - PAIN IN EXTREMITY [None]
  - PULMONARY OEDEMA [None]
